FAERS Safety Report 4528026-8 (Version None)
Quarter: 2004Q4

REPORT INFORMATION
  Report Type: 
  Country: None (occurrence: None)
  Receive Date: 20041123
  Receipt Date: 20040621
  Transmission Date: 20050328
  Serious: Yes (Other)
  Sender: FDA-Public Use
  Company Number: 2004018934

PATIENT
  Age: 52 Year
  Sex: Male

DRUGS (3)
  1. LIPITOR [Suspect]
     Indication: BLOOD CHOLESTEROL INCREASED
     Dosage: 80 MG (80 MG, 1 IN 1 D)
     Dates: start: 20030201, end: 20040201
  2. BUPROPION HYDROCHLORIDE [Concomitant]
  3. CLOPIDOGREL BISULFATE [Concomitant]

REACTIONS (6)
  - AUTOIMMUNE HEPATITIS [None]
  - DYSLIPIDAEMIA [None]
  - FATIGUE [None]
  - HEPATOTOXICITY [None]
  - INTERNATIONAL NORMALISED RATIO INCREASED [None]
  - MALAISE [None]
